FAERS Safety Report 18840149 (Version 1)
Quarter: 2021Q1

REPORT INFORMATION
  Report Type: Spontaneous
  Country: CN (occurrence: CN)
  Receive Date: 20210203
  Receipt Date: 20210203
  Transmission Date: 20210419
  Serious: Yes (Other)
  Sender: FDA-Public Use
  Company Number: CN-BAXTER-2021BAX002285

PATIENT
  Age: 55 Year
  Sex: Female

DRUGS (14)
  1. GLUCOSE [Suspect]
     Active Substance: DEXTROSE
     Dosage: 4TH CHEMOTHERAPY; DOXORUBICIN HYDROCHLORIDE LIPOSOME 60 MG + GLUCOSE 250 ML
     Route: 041
     Dates: start: 20201204, end: 20201204
  2. GLUCOSE [Suspect]
     Active Substance: DEXTROSE
     Dosage: DOSE RE?INTRODUCED; DOXORUBICIN HYDROCHLORIDE LIPOSOME + GLUCOSE
     Route: 041
  3. ENDOXAN [Suspect]
     Active Substance: CYCLOPHOSPHAMIDE
     Dosage: 4TH CHEMOTHERAPY; CYCLOPHOSPHAMIDE 1 G + SODIUM CHLORIDE 100 ML
     Route: 041
     Dates: start: 20201204, end: 20201204
  4. GLUCOSE [Suspect]
     Active Substance: DEXTROSE
     Indication: MEDICATION DILUTION
     Dosage: 1?3RD CHEMOTHERAPY; DOXORUBICIN HYDROCHLORIDE LIPOSOME + GLUCOSE
     Route: 041
  5. TROPISETRON [Concomitant]
     Active Substance: TROPISETRON
     Indication: PROPHYLAXIS
     Route: 065
     Dates: start: 202012
  6. DOXORUBICIN HYDROCHLORIDE LIPOSOME [Suspect]
     Active Substance: DOXORUBICIN HYDROCHLORIDE
     Indication: BREAST CANCER FEMALE
     Dosage: 1?3RD CHEMOTHERAPY; DOXORUBICIN HYDROCHLORIDE LIPOSOME + GLUCOSE
     Route: 041
  7. ENDOXAN [Suspect]
     Active Substance: CYCLOPHOSPHAMIDE
     Dosage: DOSE RE?INTRODUCED; CYCLOPHOSPHAMIDE + SODIUM CHLORIDE
     Route: 041
  8. DOXORUBICIN HYDROCHLORIDE LIPOSOME [Suspect]
     Active Substance: DOXORUBICIN HYDROCHLORIDE
     Dosage: DOSE RE?INTRODUCED; DOXORUBICIN HYDROCHLORIDE LIPOSOME + GLUCOSE
     Route: 041
  9. SODIUM CHLORIDE. [Suspect]
     Active Substance: SODIUM CHLORIDE
     Dosage: 4TH CHEMOTHERAPY; CYCLOPHOSPHAMIDE 1 G + SODIUM CHLORIDE 100 ML
     Route: 041
     Dates: start: 20201204, end: 20201204
  10. SODIUM CHLORIDE. [Suspect]
     Active Substance: SODIUM CHLORIDE
     Dosage: DOSE RE?INTRODUCED; CYCLOPHOSPHAMIDE + SODIUM CHLORIDE
     Route: 041
  11. DOXORUBICIN HYDROCHLORIDE LIPOSOME [Suspect]
     Active Substance: DOXORUBICIN HYDROCHLORIDE
     Dosage: 4TH CHEMOTHERAPY; DOXORUBICIN HYDROCHLORIDE LIPOSOME 60 MG + GLUCOSE 250 ML
     Route: 041
     Dates: start: 20201204, end: 20201204
  12. ENDOXAN [Suspect]
     Active Substance: CYCLOPHOSPHAMIDE
     Indication: BREAST CANCER FEMALE
     Dosage: 1?3RD CHEMOTHERAPY; CYCLOPHOSPHAMIDE + SODIUM CHLORIDE
     Route: 041
  13. SODIUM CHLORIDE. [Suspect]
     Active Substance: SODIUM CHLORIDE
     Indication: MEDICATION DILUTION
     Dosage: 1?3RD CHEMOTHERAPY; CYCLOPHOSPHAMIDE + SODIUM CHLORIDE
     Route: 041
  14. TEGRETOL [Concomitant]
     Active Substance: CARBAMAZEPINE
     Indication: PROPHYLAXIS
     Route: 065
     Dates: start: 202012

REACTIONS (4)
  - Dysphagia [Recovering/Resolving]
  - Nausea [Recovering/Resolving]
  - Gastrooesophageal reflux disease [Recovering/Resolving]
  - Vomiting [Recovering/Resolving]

NARRATIVE: CASE EVENT DATE: 202012
